FAERS Safety Report 6226669-7 (Version None)
Quarter: 2009Q2

REPORT INFORMATION
  Report Type: 
  Country: None (occurrence: None)
  Receive Date: 20090612
  Receipt Date: 20090521
  Transmission Date: 20091009
  Serious: No
  Sender: FDA-Public Use
  Company Number: US-ABBOTT-09P-163-0574872-00

PATIENT
  Sex: Female
  Weight: 43.584 kg

DRUGS (3)
  1. HUMIRA [Suspect]
     Indication: CROHN'S DISEASE
     Dates: start: 20090511
  2. DIFLUCAN [Concomitant]
     Indication: FUNGAL INFECTION
     Dates: start: 20090502
  3. LIQUID IRON [Concomitant]
     Indication: DRUG USE FOR UNKNOWN INDICATION
     Dates: start: 20090301

REACTIONS (3)
  - ANAEMIA [None]
  - CONSTIPATION [None]
  - FUNGAL INFECTION [None]
